FAERS Safety Report 13088508 (Version 1)
Quarter: 2017Q1

REPORT INFORMATION
  Report Type: Spontaneous
  Country: US (occurrence: US)
  Receive Date: 20170104
  Receipt Date: 20170104
  Transmission Date: 20170428
  Serious: Yes (Hospitalization)
  Sender: FDA-Public Use
  Company Number: None

PATIENT
  Age: 61 Year
  Sex: Female
  Weight: 55 kg

DRUGS (8)
  1. TYLENOL [Concomitant]
     Active Substance: ACETAMINOPHEN
  2. FENTANYL. [Concomitant]
     Active Substance: FENTANYL
  3. METAMUCIL [Concomitant]
     Active Substance: PLANTAGO SEED
  4. ELIQUIS [Suspect]
     Active Substance: APIXABAN
     Indication: DEEP VEIN THROMBOSIS
     Route: 048
     Dates: start: 20161222, end: 20170104
  5. NORVASC [Concomitant]
     Active Substance: AMLODIPINE BESYLATE
  6. PHENERGAN [Concomitant]
     Active Substance: PROMETHAZINE HYDROCHLORIDE
  7. OMEPRAZOLE. [Concomitant]
     Active Substance: OMEPRAZOLE
  8. PERCOCET [Concomitant]
     Active Substance: ACETAMINOPHEN\OXYCODONE HYDROCHLORIDE

REACTIONS (4)
  - Hypophagia [None]
  - Depressed level of consciousness [None]
  - Sepsis [None]
  - Pyrexia [None]

NARRATIVE: CASE EVENT DATE: 20161231
